FAERS Safety Report 15454378 (Version 1)
Quarter: 2018Q3

REPORT INFORMATION
  Report Type: Spontaneous
  Country: US (occurrence: US)
  Receive Date: 20180927
  Receipt Date: 20180927
  Transmission Date: 20181010
  Serious: Yes (Life-Threatening, Hospitalization, Disabling)
  Sender: FDA-Public Use
  Company Number: None

PATIENT
  Age: 64 Year
  Sex: Male
  Weight: 80.74 kg

DRUGS (17)
  1. HAWAIIN ASSAXATA [Concomitant]
  2. MSMG [Concomitant]
  3. DEPAKOTE [Suspect]
     Active Substance: DIVALPROEX SODIUM
     Indication: PRODUCT USED FOR UNKNOWN INDICATION
  4. WEST WHEAT GRASS [Concomitant]
     Active Substance: PASCOPYRUM SMITHII POLLEN
  5. GARLIC OIL [Concomitant]
     Active Substance: GARLIC OIL
  6. SOVERESEN SILVER [Concomitant]
  7. MILK THISTLE [Concomitant]
     Active Substance: DIETARY SUPPLEMENT\HERBALS\MILK THISTLE
  8. MSM [Concomitant]
     Active Substance: DIMETHYL SULFONE
  9. ALC [Concomitant]
  10. LORDYCEPS [Concomitant]
  11. POTASSIUM [Concomitant]
     Active Substance: POTASSIUM
  12. RABA [Concomitant]
  13. LISINOPRIL. [Concomitant]
     Active Substance: LISINOPRIL
  14. COD LIVER OIL [Concomitant]
     Active Substance: COD LIVER OIL
  15. FLAXSEED [Concomitant]
     Active Substance: FLAX SEED
  16. ASPIRIN. [Concomitant]
     Active Substance: ASPIRIN
  17. (ILLEGIBLE) BERRIES [Concomitant]

REACTIONS (10)
  - Weight increased [None]
  - Blister [None]
  - Panic attack [None]
  - Abdominal pain upper [None]
  - Insomnia [None]
  - Asthenia [None]
  - Anxiety [None]
  - Gait disturbance [None]
  - Dizziness [None]
  - Coordination abnormal [None]

NARRATIVE: CASE EVENT DATE: 1989
